FAERS Safety Report 14940595 (Version 1)
Quarter: 2018Q2

REPORT INFORMATION
  Report Type: Spontaneous
  Country: US (occurrence: US)
  Receive Date: 20180525
  Receipt Date: 20180525
  Transmission Date: 20180711
  Serious: Yes (Other)
  Sender: FDA-Public Use
  Company Number: US-TEVA-2018-US-893773

PATIENT
  Sex: Female

DRUGS (1)
  1. CLONAZEPAM. [Suspect]
     Active Substance: CLONAZEPAM
     Indication: SEIZURE
     Dosage: PATIENT TOOK 1 (0.5MG) IN THE MORNING, AND 3 (0.5MG) AT NIGHT
     Route: 065

REACTIONS (3)
  - Tongue biting [Unknown]
  - Seizure [Unknown]
  - Coma [Unknown]
